FAERS Safety Report 4548955-9 (Version None)
Quarter: 2005Q1

REPORT INFORMATION
  Report Type: 
  Country: None (occurrence: None)
  Receive Date: 20041227
  Receipt Date: 20041013
  Transmission Date: 20050727
  Serious: No
  Sender: FDA-Public Use
  Company Number: 04P-163-0277157-00

PATIENT
  Age: 47 Year
  Sex: Female

DRUGS (6)
  1. HUMIRA [Suspect]
     Indication: RHEUMATOID ARTHRITIS
     Dosage: 40 MG, 1 IN 2 WK, SUBCUTANEOUS
     Route: 058
     Dates: start: 20030207, end: 20040801
  2. PANTOPRAZOLE [Concomitant]
  3. EFFEXOR [Concomitant]
  4. FOSINOPRIL SODIUM [Concomitant]
  5. ESTROGENS CONJUGATED [Concomitant]
  6. OTC NSAID [Concomitant]

REACTIONS (5)
  - ASPARTATE AMINOTRANSFERASE INCREASED [None]
  - CONDITION AGGRAVATED [None]
  - INJECTION SITE PAIN [None]
  - INJECTION SITE RASH [None]
  - RHEUMATOID ARTHRITIS [None]
